FAERS Safety Report 17078022 (Version 1)
Quarter: 2019Q4

REPORT INFORMATION
  Report Type: Spontaneous
  Country: US (occurrence: US)
  Receive Date: 20191126
  Receipt Date: 20191126
  Transmission Date: 20200122
  Serious: No
  Sender: FDA-Public Use
  Company Number: US-BAUSCH-BL-2019-061079

PATIENT
  Age: 40 Year
  Sex: Female

DRUGS (2)
  1. LUMIFY [Suspect]
     Active Substance: BRIMONIDINE TARTRATE
     Indication: OCULAR HYPERAEMIA
     Dosage: ABOUT A YEAR, AS NEEDED?1 DROP IN EACH EYE
     Route: 048
  2. LUMIFY [Suspect]
     Active Substance: BRIMONIDINE TARTRATE
     Dosage: PHYSICIAN TOLD HER SHE COULD USE 1 DROP IN EACH EYE DAILY
     Route: 048

REACTIONS (1)
  - Therapeutic product effect decreased [Unknown]

NARRATIVE: CASE EVENT DATE: 2019
